FAERS Safety Report 7330539-0 (Version None)
Quarter: 2011Q1

REPORT INFORMATION
  Report Type: 
  Country: None (occurrence: None)
  Receive Date: 20110304
  Receipt Date: 20110223
  Transmission Date: 20110831
  Serious: No
  Sender: FDA-Public Use
  Company Number: US-BIOGENIDEC-2011BI007319

PATIENT
  Age: 33 Year
  Sex: Female

DRUGS (2)
  1. XANAX [Concomitant]
     Indication: ANXIETY
     Dates: start: 20101201
  2. TYSABRI [Suspect]
     Indication: MULTIPLE SCLEROSIS
     Route: 042
     Dates: start: 20101229

REACTIONS (5)
  - HEADACHE [None]
  - VAGINAL INFECTION [None]
  - URINARY TRACT INFECTION [None]
  - MOOD ALTERED [None]
  - FATIGUE [None]
